FAERS Safety Report 20722822 (Version 1)
Quarter: 2022Q2

REPORT INFORMATION
  Report Type: Spontaneous
  Country: US (occurrence: US)
  Receive Date: 20220419
  Receipt Date: 20220419
  Transmission Date: 20220721
  Serious: Yes (Death, Hospitalization, Other)
  Sender: FDA-Public Use
  Company Number: US-CELGENE-USA-20220302071

PATIENT
  Age: 81 Year
  Sex: Male
  Weight: 61.69 kg

DRUGS (3)
  1. REVLIMID [Suspect]
     Active Substance: LENALIDOMIDE
     Indication: Follicular lymphoma
     Dosage: FREQUENCY 3W, 1 W OFF
     Route: 048
     Dates: start: 20220101, end: 20220405
  2. REVLIMID [Suspect]
     Active Substance: LENALIDOMIDE
     Dosage: 10 MILLIGRAM
     Route: 048
     Dates: start: 202201
  3. REVLIMID [Suspect]
     Active Substance: LENALIDOMIDE
     Dosage: FORM STRENGTH : 2.5 ?2.5 MILLIGRAM
     Route: 048
     Dates: start: 20220210

REACTIONS (4)
  - Death [Fatal]
  - Gait inability [Unknown]
  - Asthenia [Unknown]
  - Oedema peripheral [Unknown]
